FAERS Safety Report 4886103-6 (Version None)
Quarter: 2006Q1

REPORT INFORMATION
  Report Type: 
  Country: None (occurrence: None)
  Receive Date: 20060118
  Receipt Date: 20060118
  Transmission Date: 20060701
  Serious: Yes (Hospitalization)
  Sender: FDA-Public Use
  Company Number: None

PATIENT
  Sex: Female
  Weight: 99.7 kg

DRUGS (1)
  1. ENOXAPARIN SODIUM [Suspect]
     Dosage: 60 MG   BID   SQ
     Route: 058

REACTIONS (2)
  - POST PROCEDURAL HAEMORRHAGE [None]
  - WOUND HAEMORRHAGE [None]
